FAERS Safety Report 9772922 (Version 2)
Quarter: 2014Q1

REPORT INFORMATION
  Report Type: Spontaneous
  Country: US (occurrence: US)
  Receive Date: 20131219
  Receipt Date: 20140131
  Transmission Date: 20141002
  Serious: No
  Sender: FDA-Public Use
  Company Number: US-PFIZER INC-2013359180

PATIENT
  Age: 31 Year
  Sex: Male
  Weight: 109 kg

DRUGS (2)
  1. ADVIL COLD AND SINUS [Suspect]
     Indication: NASOPHARYNGITIS
     Dosage: UNK, ONCE A DAY
     Route: 048
     Dates: start: 20131201, end: 201312
  2. ADVIL COLD AND SINUS [Suspect]
     Indication: SINUS DISORDER

REACTIONS (3)
  - Feeling abnormal [Unknown]
  - Drug intolerance [Unknown]
  - Depression [Unknown]
